FAERS Safety Report 23188634 (Version 1)
Quarter: 2023Q4

REPORT INFORMATION
  Report Type: Spontaneous
  Country: US (occurrence: US)
  Receive Date: 20231115
  Receipt Date: 20231115
  Transmission Date: 20240109
  Serious: No
  Sender: FDA-Public Use
  Company Number: US-PFIZER INC-202300359274

PATIENT
  Age: 80 Year
  Sex: Male
  Weight: 70.31 kg

DRUGS (14)
  1. PAXLOVID [Suspect]
     Active Substance: NIRMATRELVIR\RITONAVIR
     Indication: COVID-19 treatment
     Dosage: 3 DF, 2X/DAY[NIRMATRELVIR 300 MG]/[RITONAVIR 100 MG]; 2X/DAY
     Route: 048
     Dates: start: 20231103, end: 20231106
  2. PAXLOVID [Suspect]
     Active Substance: NIRMATRELVIR\RITONAVIR
     Dosage: [NIRMATRELVIR 150 MG]/[RITONAVIR 100 MG]; 2X/DAY
     Route: 048
     Dates: start: 20231107
  3. ALLOPURINOL [Concomitant]
     Active Substance: ALLOPURINOL
     Indication: Gout
     Dosage: 100 MG, ONCE A DAY
  4. ASPIRIN [Concomitant]
     Active Substance: ASPIRIN
     Indication: Cardiovascular disorder
     Dosage: 81 MG, 1X/DAY
  5. LIPITOR [Concomitant]
     Active Substance: ATORVASTATIN CALCIUM
     Indication: Cardiac disorder
     Dosage: 80 MG, 1X/DAY
  6. IRON [Concomitant]
     Active Substance: IRON
     Indication: Anaemia
     Dosage: 25 UG
  7. JARDIANCE [Concomitant]
     Active Substance: EMPAGLIFLOZIN
     Indication: Renal disorder
     Dosage: 6 MG, DAILY
  8. METFORMIN HYDROCHLORIDE [Concomitant]
     Active Substance: METFORMIN HYDROCHLORIDE
     Indication: Diabetes mellitus
     Dosage: 500 MG, 2X/DAY
  9. PANTOPRAZOLE [Concomitant]
     Active Substance: PANTOPRAZOLE
     Indication: Oesophageal disorder
     Dosage: 40 MG, 2X/DAY
  10. RAYALDEE [Concomitant]
     Active Substance: CALCIFEDIOL
     Indication: Renal disorder
     Dosage: 30 UG, DAILY (2 PILLS A DAY)
  11. RYTARY [Concomitant]
     Active Substance: CARBIDOPA\LEVODOPA
     Indication: Parkinsonism
     Dosage: [CARBIDOPA 61.25 MG]/[LEVODOPA 245 MG], 2 TABLET 3 TIMES A DAY
  12. SERTRALINE [Concomitant]
     Active Substance: SERTRALINE HYDROCHLORIDE
     Indication: Depression
     Dosage: 100 MG, 2X/DAY
  13. WARFARIN [Concomitant]
     Active Substance: WARFARIN
     Indication: Aortic valve replacement
     Dosage: 6 MG, 1X/DAY
  14. LEVOTHYROXINE [Concomitant]
     Active Substance: LEVOTHYROXINE
     Indication: Thyroid disorder
     Dosage: 50 UG, 1X/DAY

REACTIONS (6)
  - Malaise [Unknown]
  - Pyrexia [Unknown]
  - Headache [Unknown]
  - Product prescribing error [Unknown]
  - Incorrect dose administered [Unknown]
  - Feeling abnormal [Unknown]
